FAERS Safety Report 6291399-2 (Version None)
Quarter: 2009Q3

REPORT INFORMATION
  Report Type: 
  Country: None (occurrence: None)
  Receive Date: 20090730
  Receipt Date: 20090716
  Transmission Date: 20100115
  Serious: Yes (Hospitalization)
  Sender: FDA-Public Use
  Company Number: NO-MYLANLABS-2009S1013274

PATIENT
  Age: 89 Year
  Sex: Female

DRUGS (7)
  1. NAPROXEN [Suspect]
     Indication: DRUG USE FOR UNKNOWN INDICATION
  2. MAREVAN [Interacting]
     Indication: ATRIAL FIBRILLATION
     Dosage: 5 TAB/WEEK
  3. RENITEC [Concomitant]
     Indication: DRUG USE FOR UNKNOWN INDICATION
  4. FUROSEMIDE [Concomitant]
     Indication: DRUG USE FOR UNKNOWN INDICATION
  5. IMOVANE [Concomitant]
     Indication: DRUG USE FOR UNKNOWN INDICATION
  6. LYRICA [Concomitant]
     Indication: DRUG USE FOR UNKNOWN INDICATION
  7. CARVEDILOL [Concomitant]
     Indication: DRUG USE FOR UNKNOWN INDICATION

REACTIONS (2)
  - DRUG INTERACTION [None]
  - INTERNATIONAL NORMALISED RATIO INCREASED [None]
